FAERS Safety Report 9202304 (Version 1)
Quarter: 2013Q1

REPORT INFORMATION
  Report Type: Spontaneous
  Country: US (occurrence: None)
  Receive Date: 20130329
  Receipt Date: 20130329
  Transmission Date: 20140127
  Serious: Yes (Hospitalization)
  Sender: FDA-Public Use
  Company Number: None

PATIENT
  Age: 64 Year
  Sex: Male

DRUGS (3)
  1. ENBREL [Suspect]
     Dosage: 50 MG WKLY.SC.
     Dates: start: 20130304, end: 20130328
  2. ENBREL [Suspect]
     Dosage: 50 MG WKLY.SC.
     Dates: start: 20130304, end: 20130328
  3. ENBREL [Suspect]
     Dosage: 50 MG WKLY.SC.
     Dates: start: 20130304, end: 20130328

REACTIONS (1)
  - Back pain [None]
